FAERS Safety Report 4359481-4 (Version None)
Quarter: 2004Q2

REPORT INFORMATION
  Report Type: 
  Country: None (occurrence: None)
  Receive Date: 20040518
  Receipt Date: 20031010
  Transmission Date: 20050107
  Serious: No
  Sender: FDA-Public Use
  Company Number: US-BRISTOL-MYERS SQUIBB COMPANY-12408761

PATIENT
  Age: 75 Year
  Sex: Female
  Weight: 91 kg

DRUGS (9)
  1. VEETIDS [Suspect]
     Indication: BONE INFECTION
     Route: 048
     Dates: start: 20030930
  2. LASIX [Concomitant]
  3. MEDROL [Concomitant]
  4. ACIPHEX [Concomitant]
  5. BECONASE [Concomitant]
  6. TYLENOL [Concomitant]
  7. BENADRYL [Concomitant]
  8. NITROGLYCERIN [Concomitant]
  9. PULMICORT [Concomitant]

REACTIONS (2)
  - RASH PRURITIC [None]
  - TREMOR [None]
